FAERS Safety Report 7238367-1 (Version None)
Quarter: 2011Q1

REPORT INFORMATION
  Report Type: 
  Country: None (occurrence: None)
  Receive Date: 20110118
  Receipt Date: 20110112
  Transmission Date: 20110831
  Serious: Yes (Other)
  Sender: FDA-Public Use
  Company Number: 1000018132

PATIENT
  Sex: Male

DRUGS (8)
  1. LISINOPRIL [Suspect]
     Indication: HYPERTENSION
     Dosage: ORAL
     Route: 048
  2. FUROSEMIDE [Suspect]
     Indication: HYPERTENSION
     Dosage: ORAL
     Route: 048
  3. ALISKIREN (ALISKIREN) [Suspect]
     Indication: HYPERTENSION
  4. CATAPRES-TTS-1 [Suspect]
     Indication: HYPERTENSION
     Dosage: TRANSDERMAL
     Route: 062
  5. MINOXIDIL [Suspect]
     Indication: HYPERTENSION
     Dosage: ORAL
     Route: 048
  6. BYSTOLIC [Suspect]
     Indication: HYPERTENSION
  7. CRESTOR [Concomitant]
  8. POTASSIUM CHLORIDE (POTASSIUM CHLORIDE) (TABLETS) (POTASSIUM CHLORIDE) [Concomitant]

REACTIONS (3)
  - BLOOD PRESSURE INADEQUATELY CONTROLLED [None]
  - DRUG INEFFECTIVE [None]
  - ABDOMINAL DISTENSION [None]
